FAERS Safety Report 8097048-5 (Version None)
Quarter: 2012Q1

REPORT INFORMATION
  Report Type: 
  Country: None (occurrence: None)
  Receive Date: 20120131
  Receipt Date: 20120120
  Transmission Date: 20120608
  Serious: Yes (Hospitalization)
  Sender: FDA-Public Use
  Company Number: US-BAYER-201040652NA

PATIENT
  Age: 40 Year
  Sex: Female
  Weight: 68.027 kg

DRUGS (16)
  1. OXYCODONE HCL AND ACETAMINOPHEN [Concomitant]
     Dosage: 5/325 MG
     Route: 048
     Dates: start: 20030923
  2. DROSPIRENONE AND ETHINYL ESTRADIOL [Suspect]
     Indication: PREMENSTRUAL SYNDROME
  3. MEDROXYPROGESTERONE [Concomitant]
     Dosage: UNK
     Dates: start: 20030818
  4. YASMIN [Suspect]
     Indication: ACNE
     Dosage: UNK
     Dates: start: 20030801, end: 20031101
  5. ALPRAZOLAM [Concomitant]
     Dosage: 0.25 MG, UNK
     Route: 048
     Dates: start: 20030815
  6. YAZ [Suspect]
     Indication: ACNE
     Dosage: UNK
     Dates: start: 20030801, end: 20031101
  7. ZOLOFT [Concomitant]
     Indication: DEPRESSION
  8. CIPROFLOXACIN [Concomitant]
     Dosage: UNK
     Route: 048
     Dates: start: 20030923
  9. ARMODAFINIL [Concomitant]
     Dosage: 150 MG, UNK
     Route: 048
     Dates: start: 20030923
  10. CEPHALEXIN [Concomitant]
     Dosage: 500 MG, UNK
     Route: 048
     Dates: start: 20030930
  11. PREVACID [Concomitant]
     Dosage: 30 MG, UNK
     Route: 048
     Dates: start: 20031028
  12. DROSPIRENONE AND ETHINYL ESTRADIOL [Suspect]
     Indication: ACNE
     Dosage: UNK
     Dates: start: 20030801, end: 20031101
  13. WELLBUTRIN [Concomitant]
  14. ASPIRIN [Concomitant]
  15. ZITHROMAX [Concomitant]
     Dosage: 250 MG, UNK
     Route: 048
     Dates: start: 20030917
  16. IBUPROFEN [Concomitant]
     Dosage: 600 MG, UNK
     Route: 048
     Dates: start: 20030923

REACTIONS (3)
  - INJURY [None]
  - CEREBROVASCULAR ACCIDENT [None]
  - SCOTOMA [None]
